FAERS Safety Report 4383943-7 (Version None)
Quarter: 2004Q2

REPORT INFORMATION
  Report Type: 
  Country: None (occurrence: None)
  Receive Date: 20040621
  Receipt Date: 20040607
  Transmission Date: 20050107
  Serious: Yes (Hospitalization)
  Sender: FDA-Public Use
  Company Number: FR-JNJFOC-20040602019

PATIENT
  Age: 57 Year
  Sex: Female

DRUGS (4)
  1. RISPERDAL [Suspect]
     Indication: SCHIZOAFFECTIVE DISORDER
     Dosage: 2 MG,  IN 1 DAY, ORAL
     Route: 048
  2. TERCIAN (CYAMEMAZINE) [Suspect]
     Indication: SCHIZOAFFECTIVE DISORDER
     Dosage: ORAL
  3. PROZAC [Concomitant]
  4. LORAZEPAM [Concomitant]

REACTIONS (3)
  - ANAEMIA [None]
  - DRUG INTERACTION [None]
  - SYSTEMIC LUPUS ERYTHEMATOSUS [None]
